FAERS Safety Report 4914041-9 (Version None)
Quarter: 2006Q1

REPORT INFORMATION
  Report Type: 
  Country: None (occurrence: None)
  Receive Date: 20060216
  Receipt Date: 20040220
  Transmission Date: 20060701
  Serious: Yes (Hospitalization)
  Sender: FDA-Public Use
  Company Number: FR-ROCHE-359452

PATIENT
  Age: 53 Year
  Sex: Female

DRUGS (2)
  1. LARIAM [Suspect]
     Indication: MALARIA
     Dosage: DOSAGE REPORTED AS 1.1 AND 1.2 MG/L.
     Route: 048
     Dates: start: 20031217
  2. UNKNOWN MEDICATION [Concomitant]
     Indication: DRUG USE FOR UNKNOWN INDICATION
     Dosage: DRUG REPORTED AS CLAMOXIL.
     Route: 042
     Dates: start: 20031220, end: 20031222

REACTIONS (4)
  - DRUG TOXICITY [None]
  - LUNG DISORDER [None]
  - PULMONARY FIBROSIS [None]
  - RESPIRATORY FAILURE [None]
